FAERS Safety Report 4690913-8 (Version None)
Quarter: 2005Q2

REPORT INFORMATION
  Report Type: 
  Country: None (occurrence: None)
  Receive Date: 20050615
  Receipt Date: 20050608
  Transmission Date: 20051028
  Serious: Yes (Death)
  Sender: FDA-Public Use
  Company Number: PHBS2005JP08160

PATIENT
  Age: 77 Year
  Sex: Female

DRUGS (5)
  1. PREDNISOLONE [Suspect]
     Dosage: 15 MG/D
     Route: 048
     Dates: start: 20030101
  2. PREDNISOLONE [Suspect]
     Dosage: 5 MG/D
     Route: 048
  3. CYCLOSPORINE [Suspect]
     Indication: APLASTIC ANAEMIA
     Dosage: 300 MG/D
     Route: 048
     Dates: start: 20030201
  4. CYCLOSPORINE [Suspect]
     Dosage: 150 MG/D
     Route: 048
  5. BLOOD TRANSFUSION, AUXILIARY PRODUCTS [Concomitant]
     Dates: end: 20031001

REACTIONS (8)
  - ACID HEMOLYSIN TEST [None]
  - BLOOD LACTATE DEHYDROGENASE INCREASED [None]
  - CHROMOSOME ABNORMALITY [None]
  - COOMBS TEST NEGATIVE [None]
  - HAEMOLYSIS [None]
  - MULTI-ORGAN FAILURE [None]
  - PAROXYSMAL NOCTURNAL HAEMOGLOBINURIA [None]
  - RED BLOOD CELL ABNORMALITY [None]
